FAERS Safety Report 6033223-9 (Version None)
Quarter: 2009Q1

REPORT INFORMATION
  Report Type: 
  Country: None (occurrence: None)
  Receive Date: 20090105
  Receipt Date: 20080404
  Transmission Date: 20090719
  Serious: Yes (Other)
  Sender: FDA-Public Use
  Company Number: US-000606

PATIENT
  Sex: Female

DRUGS (2)
  1. MULTIHANCE [Suspect]
     Indication: ASTHENIA
     Dosage: 10ML QD INTRAVENOUS (NOT OTHERWISE SPECIFIED)
     Route: 042
     Dates: start: 20080403, end: 20080403
  2. MULTIHANCE [Suspect]
     Indication: NUCLEAR MAGNETIC RESONANCE IMAGING BRAIN
     Dosage: 10ML QD INTRAVENOUS (NOT OTHERWISE SPECIFIED)
     Route: 042
     Dates: start: 20080403, end: 20080403

REACTIONS (5)
  - ASTHENIA [None]
  - HEADACHE [None]
  - HYPOAESTHESIA FACIAL [None]
  - PARAESTHESIA [None]
  - VOCAL CORD DISORDER [None]
